FAERS Safety Report 16699809 (Version 2)
Quarter: 2019Q3

REPORT INFORMATION
  Report Type: Spontaneous
  Country: IN (occurrence: IN)
  Receive Date: 20190813
  Receipt Date: 20190826
  Transmission Date: 20191004
  Serious: Yes (Life-Threatening, Hospitalization, Other)
  Sender: FDA-Public Use
  Company Number: PHHY2019IN182916

PATIENT
  Age: 46 Year
  Sex: Male

DRUGS (1)
  1. PREDNISOLONE. [Suspect]
     Active Substance: PREDNISOLONE
     Indication: LICHEN PLANUS
     Dosage: 40 MG, QD
     Route: 048

REACTIONS (9)
  - Hyponatraemia [Recovered/Resolved]
  - Strongyloidiasis [Recovered/Resolved]
  - Duodenal ulcer [Recovered/Resolved]
  - Hypokalaemia [Recovered/Resolved]
  - Dehydration [Recovered/Resolved]
  - Sepsis [Recovered/Resolved]
  - Duodenal obstruction [Recovered/Resolved]
  - Hypoalbuminaemia [Recovered/Resolved]
  - Vomiting [Recovered/Resolved]
